FAERS Safety Report 4297501-6 (Version None)
Quarter: 2004Q1

REPORT INFORMATION
  Report Type: 
  Country: None (occurrence: None)
  Receive Date: 20040213
  Receipt Date: 20040204
  Transmission Date: 20041129
  Serious: Yes (Hospitalization)
  Sender: FDA-Public Use
  Company Number: NSADSS2003005354

PATIENT
  Age: 59 Year
  Sex: Female
  Weight: 58.9676 kg

DRUGS (11)
  1. REMICADE [Suspect]
     Indication: CROHN'S DISEASE
     Dosage: SEE IMAGE
     Route: 041
     Dates: start: 20020416, end: 20020415
  2. REMICADE [Suspect]
     Indication: CROHN'S DISEASE
     Dosage: SEE IMAGE
     Route: 041
     Dates: start: 20021029, end: 20021029
  3. REMICADE [Suspect]
     Indication: CROHN'S DISEASE
     Dosage: SEE IMAGE
     Route: 041
     Dates: start: 20021203, end: 20021203
  4. REMICADE [Suspect]
     Indication: CROHN'S DISEASE
     Dosage: SEE IMAGE
     Route: 041
     Dates: start: 29921001, end: 20031001
  5. REMICADE [Suspect]
     Indication: CROHN'S DISEASE
     Dosage: SEE IMAGE
     Route: 041
     Dates: start: 20030422
  6. REMICADE [Suspect]
     Indication: CROHN'S DISEASE
     Dosage: SEE IMAGE
     Route: 041
     Dates: start: 20030617
  7. MESALAMINE (MESALAMINE) [Concomitant]
  8. ANTIBIOTICS (ANTIBIOTICS) [Concomitant]
  9. CORTICOSTEROIDS (CORTICOSTEROIDS) [Concomitant]
  10. ACETAMINOPHNE (PARACETAMOL) [Concomitant]
  11. ANTIHISTAMINES (ANTIHISTAMINES) [Concomitant]

REACTIONS (5)
  - CROHN'S DISEASE [None]
  - FIBROSIS [None]
  - IRRITABLE BOWEL SYNDROME [None]
  - SMALL INTESTINAL OBSTRUCTION [None]
  - THERAPY NON-RESPONDER [None]
